FAERS Safety Report 8733184 (Version 1)
Quarter: 2012Q4

REPORT INFORMATION
  Report Type: 
  Country: US (occurrence: US)
  Receive Date: 20120911
  Receipt Date: 20120911
  Transmission Date: 20130627
  Serious: Yes (Other)
  Sender: FDA-Public Use
  Company Number: US-JNJCP-30000124078

PATIENT
  Age: 43 Year
  Sex: Female
  Weight: 70 kg

DRUGS (3)
  1. NEUTROGENA ULTRA SHEER BODY MIST SUNSCREEN BROAD SPECTRUM SPF 30 [Suspect]
     Indication: PREVENTION
     Dosage: a little bit amount on finger tips on her cheek bones, nose and forehead, once
     Route: 061
     Dates: start: 20120803, end: 20120803
  2. LO-ESTRIN FE [Concomitant]
     Indication: CONTRACEPTION
     Dosage: once a day
  3. RESTASIS [Concomitant]
     Indication: DRY EYES
     Dosage: twice a day

REACTIONS (6)
  - Application site erythema [Recovered/Resolved]
  - Application site reaction [Recovered/Resolved]
  - Application site pain [Recovered/Resolved]
  - Application site swelling [Recovered/Resolved]
  - Eye swelling [Recovered/Resolved]
  - Paraesthesia oral [Recovered/Resolved]
